FAERS Safety Report 4575751-9 (Version None)
Quarter: 2005Q1

REPORT INFORMATION
  Report Type: 
  Country: None (occurrence: None)
  Receive Date: 20050209
  Receipt Date: 20050131
  Transmission Date: 20050727
  Serious: Yes (Other)
  Sender: FDA-Public Use
  Company Number: US-GLAXOSMITHKLINE-A0543028A

PATIENT
  Age: 82 Year
  Sex: Female
  Weight: 63 kg

DRUGS (12)
  1. GAVISCON [Suspect]
     Route: 048
     Dates: start: 19850101
  2. K-DUR 10 [Concomitant]
     Route: 048
  3. ACIPHEX [Concomitant]
     Route: 048
  4. NORVASC [Concomitant]
     Indication: HYPERTENSION
     Route: 048
  5. ZOCOR [Concomitant]
     Route: 048
  6. GEMFIBROZIL [Concomitant]
     Route: 048
  7. BETAPACE [Concomitant]
     Route: 048
  8. SYNTHROID [Concomitant]
     Indication: HYPOTHYROIDISM
     Route: 048
  9. LASIX [Concomitant]
     Indication: HYPERTENSION
     Route: 048
  10. COZAAR [Concomitant]
     Route: 048
  11. FOLIC ACID [Concomitant]
     Route: 048
  12. VITAMIN B-12 [Concomitant]

REACTIONS (1)
  - DIABETES MELLITUS [None]
